FAERS Safety Report 9593913 (Version 1)
Quarter: 2013Q3

REPORT INFORMATION
  Report Type: Spontaneous
  Country: US (occurrence: None)
  Receive Date: 20130930
  Receipt Date: 20130930
  Transmission Date: 20140515
  Serious: No
  Sender: FDA-Public Use
  Company Number: 1000047814

PATIENT
  Age: 79 Year
  Sex: Male

DRUGS (1)
  1. LINZESS (LINACLOTIDE) (145 MICROGRAM, CAPSULES) [Suspect]
     Indication: CONSTIPATION
     Dosage: 580 MCG (145 MCG, 4 IN 1 D), ORAL
     Route: 048
     Dates: start: 20130810, end: 20130810

REACTIONS (3)
  - Asthenia [None]
  - Vomiting [None]
  - Accidental overdose [None]
